FAERS Safety Report 22182446 (Version 2)
Quarter: 2023Q2

REPORT INFORMATION
  Report Type: Spontaneous
  Country: US (occurrence: US)
  Receive Date: 20230406
  Receipt Date: 20230420
  Transmission Date: 20230722
  Serious: Yes (Death, Life-Threatening, Hospitalization)
  Sender: FDA-Public Use
  Company Number: US-TEVA-2023-US-2872786

PATIENT
  Age: 35 Year
  Sex: Female

DRUGS (3)
  1. ONDANSETRON [Suspect]
     Active Substance: ONDANSETRON
     Indication: Alcohol poisoning
     Route: 041
  2. KETOROLAC [Suspect]
     Active Substance: KETOROLAC TROMETHAMINE
     Indication: Alcohol poisoning
     Route: 041
  3. VITAMINS [Concomitant]
     Active Substance: VITAMINS
     Indication: Alcohol poisoning
     Route: 041

REACTIONS (6)
  - Cardiac arrest [Fatal]
  - Ventricular fibrillation [Fatal]
  - Ventricular tachycardia [Fatal]
  - Hypokalaemia [Recovered/Resolved]
  - Hypomagnesaemia [Recovered/Resolved]
  - Cerebral disorder [Not Recovered/Not Resolved]
